FAERS Safety Report 22094009 (Version 1)
Quarter: 2023Q1

REPORT INFORMATION
  Report Type: Spontaneous
  Country: US (occurrence: None)
  Receive Date: 20230314
  Receipt Date: 20230314
  Transmission Date: 20230418
  Serious: Yes (Other)
  Sender: FDA-Public Use
  Company Number: None

PATIENT
  Age: 84 Year
  Sex: Female

DRUGS (1)
  1. REPATHA [Suspect]
     Active Substance: EVOLOCUMAB
     Indication: Blood cholesterol increased
     Dates: start: 20220715, end: 20220830

REACTIONS (3)
  - Arrhythmia [None]
  - Influenza like illness [None]
  - Blood glucose increased [None]

NARRATIVE: CASE EVENT DATE: 20220715
